FAERS Safety Report 7307747-8 (Version None)
Quarter: 2011Q1

REPORT INFORMATION
  Report Type: 
  Country: None (occurrence: None)
  Receive Date: 20110223
  Receipt Date: 20110210
  Transmission Date: 20110831
  Serious: Yes (Other)
  Sender: FDA-Public Use
  Company Number: CA-ELI_LILLY_AND_COMPANY-CA201102002826

PATIENT
  Sex: Male

DRUGS (8)
  1. IMOVANE [Concomitant]
  2. ZYPREXA [Suspect]
     Indication: ANXIETY
     Dosage: 5 MG, EACH EVENING
     Dates: start: 19980922
  3. PAXIL [Concomitant]
  4. ZYPREXA [Suspect]
     Dosage: 10 MG, EACH EVENING
     Dates: end: 20040628
  5. ZYPREXA [Suspect]
     Dosage: 2.5 MG, 2/D
     Dates: start: 20020708
  6. ZYPREXA [Suspect]
     Dosage: 10 MG, EACH EVENING
     Dates: start: 20020708
  7. XANAX [Concomitant]
  8. ZYPREXA [Suspect]
     Dosage: 10 MG, DAILY (1/D)

REACTIONS (4)
  - DIABETES MELLITUS [None]
  - OFF LABEL USE [None]
  - OESOPHAGEAL VARICES HAEMORRHAGE [None]
  - HEPATIC CIRRHOSIS [None]
